FAERS Safety Report 4873834-7 (Version None)
Quarter: 2005Q4

REPORT INFORMATION
  Report Type: 
  Country: None (occurrence: None)
  Receive Date: 20051201
  Receipt Date: 20050807
  Transmission Date: 20060501
  Serious: No
  Sender: FDA-Public Use
  Company Number: 2005PV000974

PATIENT
  Age: 57 Year
  Sex: Female
  Weight: 92.0802 kg

DRUGS (8)
  1. BYETTA [Suspect]
     Indication: DIABETES MELLITUS NON-INSULIN-DEPENDENT
     Dosage: 5 MCG; BID; SC
     Route: 058
     Dates: start: 20050729
  2. TYLENOL (CAPLET) [Suspect]
     Dosage: HS, PO
     Route: 048
  3. MELATONIN [Suspect]
     Indication: SLEEP DISORDER
     Dosage: 3 MG; HS; PO
     Route: 048
  4. METFORMIN [Concomitant]
  5. STARLIX [Concomitant]
  6. VYTORIN [Concomitant]
  7. NEXIUM [Concomitant]
  8. TUMS [Concomitant]

REACTIONS (10)
  - BLOOD GLUCOSE INCREASED [None]
  - DRUG INTERACTION [None]
  - FATIGUE [None]
  - HEADACHE [None]
  - HEART RATE INCREASED [None]
  - MALAISE [None]
  - NAUSEA [None]
  - STOMACH DISCOMFORT [None]
  - VOMITING [None]
  - WEIGHT DECREASED [None]
